FAERS Safety Report 4978947-7 (Version None)
Quarter: 2006Q2

REPORT INFORMATION
  Report Type: 
  Country: None (occurrence: None)
  Receive Date: 20060419
  Receipt Date: 20060419
  Transmission Date: 20061013
  Serious: Yes (Hospitalization)
  Sender: FDA-Public Use
  Company Number: None

PATIENT
  Age: 66 Year
  Sex: Female
  Weight: 59.8748 kg

DRUGS (2)
  1. CARBOPLATIN [Suspect]
     Indication: OVARIAN CANCER
     Dosage: INTRAVENOUS 500 MGS
     Route: 042
     Dates: start: 20060302
  2. LAPATINIB 250 MG TABLETS [Suspect]
     Indication: OVARIAN EPITHELIAL CANCER
     Dosage: BY MOUTH 3 TABS /DAY X 3 WEEKS
     Route: 048
     Dates: start: 20060302

REACTIONS (3)
  - ABDOMINAL PAIN [None]
  - FLATULENCE [None]
  - INFREQUENT BOWEL MOVEMENTS [None]
